FAERS Safety Report 16780619 (Version 1)
Quarter: 2019Q4

REPORT INFORMATION
  Report Type: Spontaneous
  Country: US (occurrence: US)
  Receive Date: 20190906
  Receipt Date: 20190906
  Transmission Date: 20200122
  Serious: Yes (Other)
  Sender: FDA-Public Use
  Company Number: None

PATIENT
  Age: 60 Year
  Sex: Female
  Weight: 83 kg

DRUGS (4)
  1. PERTUZUMAB (PERJETA) [Concomitant]
     Dates: start: 20181226, end: 20190715
  2. PERJETA [Suspect]
     Active Substance: PERTUZUMAB
     Dosage: ?          OTHER FREQUENCY:EVERY 21 DAYS;?
     Route: 042
     Dates: start: 20181226, end: 20190715
  3. HERCEPTIN [Suspect]
     Active Substance: TRASTUZUMAB
     Indication: BREAST CANCER
     Dosage: ?          OTHER FREQUENCY:EVERY 21 DAYS;?
     Route: 042
     Dates: start: 20181226, end: 20190715
  4. HERCEPTIN [Concomitant]
     Active Substance: TRASTUZUMAB
     Dates: start: 20181226, end: 20190715

REACTIONS (3)
  - Dysarthria [None]
  - Paraesthesia [None]
  - Subdural haematoma [None]

NARRATIVE: CASE EVENT DATE: 20190819
